FAERS Safety Report 24042133 (Version 1)
Quarter: 2024Q3

REPORT INFORMATION
  Report Type: Spontaneous
  Country: CN (occurrence: CN)
  Receive Date: 20240702
  Receipt Date: 20240702
  Transmission Date: 20241016
  Serious: Yes (Hospitalization, Other)
  Sender: PFIZER
  Company Number: CN-PFIZER INC-PV202400085699

PATIENT
  Age: 14 Year
  Sex: Female
  Weight: 21 kg

DRUGS (3)
  1. CYTARABINE [Suspect]
     Active Substance: CYTARABINE
     Indication: Chemotherapy
     Dosage: 83 MG, 1X/DAY
     Route: 041
     Dates: start: 20240522, end: 20240528
  2. AZACITIDINE [Suspect]
     Active Substance: AZACITIDINE
     Indication: Chemotherapy
     Dosage: 60 MG, 1X/DAY
     Route: 058
     Dates: start: 20240521, end: 20240528
  3. OMACETAXINE MEPESUCCINATE [Suspect]
     Active Substance: OMACETAXINE MEPESUCCINATE
     Indication: Chemotherapy
     Dosage: 0.8 MG, 1X/DAY
     Route: 041
     Dates: start: 20240522, end: 20240526

REACTIONS (4)
  - Myelosuppression [Recovering/Resolving]
  - Myelodysplastic syndrome [Recovering/Resolving]
  - Neutrophil count decreased [Recovering/Resolving]
  - Sepsis [Recovering/Resolving]

NARRATIVE: CASE EVENT DATE: 20240610
